FAERS Safety Report 4341854-7 (Version None)
Quarter: 2004Q2

REPORT INFORMATION
  Report Type: 
  Country: None (occurrence: None)
  Receive Date: 20040415
  Receipt Date: 20040326
  Transmission Date: 20050107
  Serious: Yes (Other)
  Sender: FDA-Public Use
  Company Number: JP_040302885

PATIENT
  Age: 51 Year
  Sex: Male

DRUGS (2)
  1. GEMZAR [Suspect]
     Indication: NON-SMALL CELL LUNG CANCER
     Dosage: 1000 MG OTHER
  2. TAXOL [Concomitant]

REACTIONS (2)
  - ANGINA UNSTABLE [None]
  - ARTERIOSPASM CORONARY [None]
